FAERS Safety Report 6292511-1 (Version None)
Quarter: 2009Q3

REPORT INFORMATION
  Report Type: 
  Country: None (occurrence: None)
  Receive Date: 20090731
  Receipt Date: 20090721
  Transmission Date: 20100115
  Serious: Yes (Other)
  Sender: FDA-Public Use
  Company Number: FR-PFIZER INC-2009217493

PATIENT
  Age: 89 Year

DRUGS (2)
  1. AROMASINE [Suspect]
     Indication: BREAST CANCER
     Dosage: UNK
     Dates: start: 20071001, end: 20080201
  2. AROMASINE [Suspect]
     Dosage: UNK
     Dates: start: 20080401

REACTIONS (4)
  - ARTHRALGIA [None]
  - ASTHENIA [None]
  - HYPOTENSION [None]
  - RENAL FAILURE CHRONIC [None]
